FAERS Safety Report 8467032-8 (Version None)
Quarter: 2012Q2

REPORT INFORMATION
  Report Type: 
  Country: None (occurrence: None)
  Receive Date: 20120605
  Receipt Date: 20120605
  Transmission Date: 20120825
  Serious: Yes (Other)
  Sender: FDA-Public Use
  Company Number: None

PATIENT
  Sex: Male
  Weight: 20.4 kg

DRUGS (1)
  1. KEPPRA [Suspect]
     Dosage: 4ML BID
     Dates: start: 20100101

REACTIONS (2)
  - PRODUCT SUBSTITUTION ISSUE [None]
  - CONVULSION [None]
